APPROVED DRUG PRODUCT: BREXPIPRAZOLE
Active Ingredient: BREXPIPRAZOLE
Strength: 0.25MG
Dosage Form/Route: TABLET;ORAL
Application: A213660 | Product #001
Applicant: ZYDUS PHARMACEUTICALS USA INC
Approved: Jan 10, 2023 | RLD: No | RS: No | Type: DISCN